FAERS Safety Report 10390977 (Version 1)
Quarter: 2014Q3

REPORT INFORMATION
  Report Type: Spontaneous
  Country: US (occurrence: None)
  Receive Date: 20140815
  Receipt Date: 20140815
  Transmission Date: 20150326
  Serious: Yes (Other)
  Sender: FDA-Public Use
  Company Number: None

PATIENT
  Age: 84 Year
  Sex: Female

DRUGS (1)
  1. SUTENT [Suspect]
     Active Substance: SUNITINIB MALATE
     Indication: THYROID CANCER
     Route: 048
     Dates: start: 20140722

REACTIONS (3)
  - Stomatitis [None]
  - Pain [None]
  - Gingival pain [None]

NARRATIVE: CASE EVENT DATE: 20140801
